FAERS Safety Report 22941719 (Version 4)
Quarter: 2023Q4

REPORT INFORMATION
  Report Type: Spontaneous
  Country: KZ (occurrence: KZ)
  Receive Date: 20230914
  Receipt Date: 20231103
  Transmission Date: 20240109
  Serious: Yes (Other)
  Sender: FDA-Public Use
  Company Number: KZ-AMAROX PHARMA-HET2023KZ02478

PATIENT
  Age: 27 Year
  Sex: Male
  Weight: 74 kg

DRUGS (5)
  1. ESOMEPRAZOLE [Suspect]
     Active Substance: ESOMEPRAZOLE
     Indication: Oesophagitis
     Dosage: SOLUTION OF ESOPOL INTRAVENOUSLY BY BOLUS OF 40 MG PER 10 ML OF SODIUM CHLORIDE SOLUTION
     Route: 042
     Dates: start: 20230821, end: 20230822
  2. ESOMEPRAZOLE [Suspect]
     Active Substance: ESOMEPRAZOLE
     Indication: Gallbladder disorder
  3. CONTROLOC [Concomitant]
     Active Substance: PANTOPRAZOLE SODIUM
     Indication: Product used for unknown indication
     Dosage: 40 MILLIGRAM, 1 AMPOULE EVERY OTHER DAY
     Route: 030
  4. MUCOGEN [ACETYLCYSTEINE;AMBROXOL HYDROCHLORIDE] [Concomitant]
     Indication: Product used for unknown indication
     Dosage: 100 MILLIGRAM, 1 TAB 3 TIMES A DAY
     Route: 065
  5. SIMALGEL [ALGELDRATE;MAGNESIUM HYDROXIDE;SIMETICONE] [Concomitant]
     Indication: Product used for unknown indication
     Dosage: UNK
     Route: 065

REACTIONS (6)
  - Hyperthermia [Recovered/Resolved]
  - Injection site reaction [Recovered/Resolved]
  - Dizziness [Recovered/Resolved]
  - Vertigo [Recovered/Resolved]
  - Headache [Recovered/Resolved]
  - Off label use [Unknown]

NARRATIVE: CASE EVENT DATE: 20230821
